FAERS Safety Report 10393608 (Version 2)
Quarter: 2024Q4

REPORT INFORMATION
  Report Type: Spontaneous
  Country: IT (occurrence: IT)
  Receive Date: 20140819
  Receipt Date: 20241115
  Transmission Date: 20250115
  Serious: Yes (Hospitalization, Other)
  Sender: AUROBINDO
  Company Number: IT-MYLAN-2014M1001675

PATIENT
  Age: 73 Year
  Sex: Male
  Weight: 69 kg

DRUGS (9)
  1. WARFARIN [Interacting]
     Active Substance: WARFARIN
     Indication: Product used for unknown indication
     Dosage: 5 MILLIGRAM, DAILY (5MG/DAY)
     Route: 065
  2. WARFARIN [Interacting]
     Active Substance: WARFARIN
     Dosage: 2.5 MILLIGRAM, DAILY (2.5 MG/DAY)
     Route: 065
  3. AMIODARONE [Interacting]
     Active Substance: AMIODARONE
     Indication: Ventricular tachycardia
     Dosage: 400 MILLIGRAM, DAILY (400 MG/DAY)
     Route: 065
  4. AMIODARONE [Interacting]
     Active Substance: AMIODARONE
     Dosage: UNK
     Route: 042
  5. BISOPROLOL [Concomitant]
     Active Substance: BISOPROLOL
     Indication: Ventricular tachycardia
     Dosage: 1.25 MG/DAY
     Route: 065
  6. MEXILETINE [Concomitant]
     Active Substance: MEXILETINE
     Indication: Ventricular tachycardia
     Dosage: UNK
     Route: 065
  7. ROSUVASTATIN [Concomitant]
     Active Substance: ROSUVASTATIN
     Indication: Product used for unknown indication
     Dosage: UNK
     Route: 065
  8. HEPARIN [Concomitant]
     Active Substance: HEPARIN SODIUM
     Indication: Product used for unknown indication
     Dosage: UNK
     Route: 042
  9. ASPIRIN [Concomitant]
     Active Substance: ASPIRIN
     Indication: Product used for unknown indication
     Dosage: UNK
     Route: 065

REACTIONS (3)
  - Hyperthyroidism [Recovered/Resolved]
  - International normalised ratio increased [Recovered/Resolved]
  - Drug interaction [Recovered/Resolved]
